FAERS Safety Report 6216763-9 (Version None)
Quarter: 2009Q2

REPORT INFORMATION
  Report Type: 
  Country: None (occurrence: None)
  Receive Date: 20090603
  Receipt Date: 20090603
  Transmission Date: 20091009
  Serious: Yes (Hospitalization, Disabling, Other)
  Sender: FDA-Public Use
  Company Number: None

PATIENT
  Age: 19 Year
  Sex: Female
  Weight: 43.0917 kg

DRUGS (1)
  1. DIVALPROEX SODIUM [Suspect]
     Indication: CONVULSION
     Dosage: 750 MG 2 TIMES A DAY PO
     Route: 048
     Dates: start: 20090319, end: 20090528

REACTIONS (6)
  - ANGER [None]
  - CONVULSION [None]
  - EMOTIONAL DISORDER [None]
  - MOTOR DYSFUNCTION [None]
  - POSTICTAL PARALYSIS [None]
  - PRODUCT QUALITY ISSUE [None]
